FAERS Safety Report 6411562-7 (Version None)
Quarter: 2009Q4

REPORT INFORMATION
  Report Type: 
  Country: None (occurrence: None)
  Receive Date: 20091023
  Receipt Date: 20091016
  Transmission Date: 20100525
  Serious: Yes (Hospitalization)
  Sender: FDA-Public Use
  Company Number: KR-JNJFOC-20091005013

PATIENT
  Sex: Female
  Weight: 55.7 kg

DRUGS (2)
  1. TOPAMAX [Suspect]
     Indication: EPILEPSY
     Dosage: 100MG-125 MG
     Route: 048
     Dates: start: 20070122, end: 20091016
  2. PHENYTOIN [Suspect]
     Indication: EPILEPSY
     Route: 048

REACTIONS (10)
  - ATAXIA [None]
  - BLOOD ALKALINE PHOSPHATASE INCREASED [None]
  - BLOOD CALCIUM DECREASED [None]
  - BLOOD PHOSPHORUS DECREASED [None]
  - BLOOD POTASSIUM DECREASED [None]
  - BLOOD SODIUM DECREASED [None]
  - DRUG TOXICITY [None]
  - ELECTROLYTE IMBALANCE [None]
  - FALL [None]
  - PELVIC FRACTURE [None]
